FAERS Safety Report 15665148 (Version 1)
Quarter: 2018Q4

REPORT INFORMATION
  Report Type: Report from Study
  Country: NO (occurrence: NO)
  Receive Date: 20181128
  Receipt Date: 20181128
  Transmission Date: 20190205
  Serious: Yes (Other)
  Sender: FDA-Public Use
  Company Number: NO-SA-2018SA034243

PATIENT
  Age: 34 Year
  Sex: Female

DRUGS (4)
  1. INSULIN GLARGINE [Suspect]
     Active Substance: INSULIN GLARGINE
     Indication: TYPE 1 DIABETES MELLITUS
     Dosage: 16 DF,QD
     Route: 051
     Dates: start: 20100516
  2. NOVORAPID [Suspect]
     Active Substance: INSULIN ASPART
     Indication: TYPE 1 DIABETES MELLITUS
     Dosage: 30 DF,QD
     Route: 065
     Dates: start: 20100616
  3. FOLIC ACID. [Concomitant]
     Active Substance: FOLIC ACID
     Indication: PRODUCT USED FOR UNKNOWN INDICATION
     Dosage: UNK UNK,UNK
     Route: 065
  4. LEVAXIN [Concomitant]
     Active Substance: LEVOTHYROXINE SODIUM
     Indication: HYPOTHYROIDISM
     Dosage: UNK UNK,UNK
     Route: 065
     Dates: start: 20100616

REACTIONS (2)
  - Exposure during pregnancy [Unknown]
  - Pre-eclampsia [Recovered/Resolved]

NARRATIVE: CASE EVENT DATE: 20161026
